FAERS Safety Report 10107295 (Version 2)
Quarter: 2014Q2

REPORT INFORMATION
  Report Type: Other
  Country: US (occurrence: US)
  Receive Date: 20140424
  Receipt Date: 20140624
  Transmission Date: 20141212
  Serious: Yes (Hospitalization, Other)
  Sender: FDA-Public Use
  Company Number: US-GSKPPD-2014GSK002295

PATIENT
  Age: 73 Year
  Sex: Male

DRUGS (1)
  1. AVANDIA [Suspect]
     Indication: DIABETES MELLITUS
     Route: 048
     Dates: start: 200512, end: 200704

REACTIONS (6)
  - Myocardial infarction [None]
  - Acute coronary syndrome [None]
  - Cardiac failure congestive [None]
  - Coronary artery bypass [Recovered/Resolved]
  - Angina unstable [None]
  - Coronary artery disease [Recovered/Resolved]
